FAERS Safety Report 8833332 (Version 3)
Quarter: 2012Q4

REPORT INFORMATION
  Report Type: Report from Study
  Country: CA (occurrence: CA)
  Receive Date: 20121010
  Receipt Date: 20121227
  Transmission Date: 20130627
  Serious: Yes (Hospitalization, Other)
  Sender: FDA-Public Use
  Company Number: CA-ABBOTT-12P-028-0990961-00

PATIENT
  Sex: Male
  Weight: 97.61 kg

DRUGS (2)
  1. LUPRON DEPOT [Suspect]
     Indication: PROSTATE CANCER
     Dates: start: 201110
  2. CHEMOTHERAPEUTICS [Suspect]
     Indication: PROSTATE CANCER
     Dates: start: 20120921

REACTIONS (4)
  - Prostate cancer [Unknown]
  - Malaise [Unknown]
  - Chemotherapy [Unknown]
  - Pain [Unknown]
